FAERS Safety Report 18182238 (Version 1)
Quarter: 2020Q3

REPORT INFORMATION
  Report Type: Spontaneous
  Country: CA (occurrence: CA)
  Receive Date: 20200821
  Receipt Date: 20200821
  Transmission Date: 20201103
  Serious: Yes (Other)
  Sender: FDA-Public Use
  Company Number: CA-BAYER-2020-173541

PATIENT
  Sex: Female
  Weight: 74 kg

DRUGS (1)
  1. MIRENA [Suspect]
     Active Substance: LEVONORGESTREL
     Dosage: 20  ?G PER DAY, CONTINUOUSLY
     Route: 015

REACTIONS (7)
  - Depression [Unknown]
  - Anger [Unknown]
  - Depressed mood [Unknown]
  - Mood swings [Unknown]
  - Alopecia [Unknown]
  - Irritability [None]
  - Stress [Unknown]
